FAERS Safety Report 6108222-9 (Version None)
Quarter: 2009Q1

REPORT INFORMATION
  Report Type: 
  Country: None (occurrence: None)
  Receive Date: 20090304
  Receipt Date: 20080520
  Transmission Date: 20090719
  Serious: Yes (Hospitalization)
  Sender: FDA-Public Use
  Company Number: US-000989

PATIENT
  Age: 49 Year
  Sex: Male

DRUGS (3)
  1. ISOVUE-370 [Suspect]
     Indication: ANGINA PECTORIS
     Dosage: INTRA-ARTERIAL
     Route: 013
     Dates: start: 20080515, end: 20080515
  2. ISOVUE-370 [Suspect]
     Indication: ARTERIOGRAM CORONARY
     Dosage: INTRA-ARTERIAL
     Route: 013
     Dates: start: 20080515, end: 20080515
  3. COUMADIN [Concomitant]

REACTIONS (2)
  - HYPOTENSION [None]
  - VENTRICULAR FIBRILLATION [None]
